FAERS Safety Report 5750851-6 (Version None)
Quarter: 2008Q2

REPORT INFORMATION
  Report Type: 
  Country: None (occurrence: None)
  Receive Date: 20080528
  Receipt Date: 20080522
  Transmission Date: 20081010
  Serious: Yes (Other)
  Sender: FDA-Public Use
  Company Number: B0521485A

PATIENT
  Age: 87 Year
  Sex: Male

DRUGS (4)
  1. AUGMENTIN '125' [Suspect]
     Dosage: 625MG THREE TIMES PER DAY
     Route: 048
     Dates: start: 20080517, end: 20080519
  2. RISEDRONATE SODIUM [Concomitant]
  3. ADCAL D3 [Concomitant]
  4. CLARITHROMYCIN [Concomitant]

REACTIONS (3)
  - AMMONIA INCREASED [None]
  - HEPATIC ENCEPHALOPATHY [None]
  - SOMNOLENCE [None]
